FAERS Safety Report 7381479-2 (Version None)
Quarter: 2011Q1

REPORT INFORMATION
  Report Type: 
  Country: None (occurrence: None)
  Receive Date: 20110324
  Receipt Date: 20110324
  Transmission Date: 20110831
  Serious: No
  Sender: FDA-Public Use
  Company Number: None

PATIENT
  Age: 63 Year
  Sex: Female
  Weight: 61.2356 kg

DRUGS (3)
  1. LEVAQUIN [Suspect]
     Indication: ACUTE SINUSITIS
     Dosage: 1 A DAY FOR 10 DAYS; TOOK 1 FOR ONLY 6 DAYS
     Dates: start: 20110221
  2. LEVAQUIN [Suspect]
     Indication: ACUTE SINUSITIS
     Dosage: 1 A DAY FOR 10 DAYS; TOOK 1 FOR ONLY 6 DAYS
     Dates: start: 20110227
  3. PREDNISONE [Concomitant]

REACTIONS (1)
  - DIZZINESS [None]
